FAERS Safety Report 6398418-3 (Version None)
Quarter: 2009Q4

REPORT INFORMATION
  Report Type: 
  Country: None (occurrence: None)
  Receive Date: 20091013
  Receipt Date: 20091002
  Transmission Date: 20100525
  Serious: Yes (Other)
  Sender: FDA-Public Use
  Company Number: CA-JNJFOC-20091002045

PATIENT
  Sex: Female
  Weight: 84 kg

DRUGS (1)
  1. REMICADE [Suspect]
     Indication: CROHN'S DISEASE
     Dosage: RECEIVED 73 DOSES
     Route: 042

REACTIONS (4)
  - ANIMAL BITE [None]
  - INFLAMMATION OF WOUND [None]
  - PNEUMONIA [None]
  - WOUND DRAINAGE [None]
